FAERS Safety Report 13493827 (Version 1)
Quarter: 2017Q2

REPORT INFORMATION
  Report Type: Spontaneous
  Country: FR (occurrence: FR)
  Receive Date: 20170427
  Receipt Date: 20170427
  Transmission Date: 20170830
  Serious: Yes (Other)
  Sender: FDA-Public Use
  Company Number: FR-BAUSCH-BL-2017-010593

PATIENT
  Age: 30 Year
  Sex: Female

DRUGS (7)
  1. CARTEOL 1% COLLYRE [Suspect]
     Active Substance: CARTEOLOL
     Indication: OCULAR HYPERTENSION
     Route: 047
  2. AZOPT [Suspect]
     Active Substance: BRINZOLAMIDE
     Indication: OCULAR HYPERTENSION
     Route: 047
  3. OPHTIM [Suspect]
     Active Substance: TIMOLOL MALEATE
     Indication: OCULAR HYPERTENSION
     Route: 047
  4. GELTIM LP [Suspect]
     Active Substance: TIMOLOL MALEATE
     Indication: OCULAR HYPERTENSION
     Dosage: 1 MG/G SINGLE DOSE UNITS
     Route: 047
  5. MONOPROST [Suspect]
     Active Substance: LATANOPROST
     Indication: OCULAR HYPERTENSION
     Route: 047
  6. LUMIGAN [Suspect]
     Active Substance: BIMATOPROST
     Indication: OCULAR HYPERTENSION
     Route: 047
  7. XALATAN [Suspect]
     Active Substance: LATANOPROST
     Indication: OCULAR HYPERTENSION
     Route: 047

REACTIONS (12)
  - Hypotension [Recovering/Resolving]
  - Palpitations [Recovering/Resolving]
  - Left ventricular dysfunction [Recovering/Resolving]
  - Respiratory disorder [Not Recovered/Not Resolved]
  - Dyspnoea at rest [Recovering/Resolving]
  - Apnoea [Recovering/Resolving]
  - Chest pain [Recovering/Resolving]
  - Dyspnoea exertional [Recovering/Resolving]
  - Lung infection [Recovering/Resolving]
  - Pituitary tumour benign [Recovering/Resolving]
  - Vomiting [Recovering/Resolving]
  - Vertigo [Recovered/Resolved]

NARRATIVE: CASE EVENT DATE: 2008
